APPROVED DRUG PRODUCT: HYDROMORPHONE HYDROCHLORIDE
Active Ingredient: HYDROMORPHONE HYDROCHLORIDE
Strength: 10MG/ML
Dosage Form/Route: INJECTABLE;INJECTION
Application: A078228 | Product #001 | TE Code: AP
Applicant: RISING PHARMA HOLDINGS INC
Approved: Apr 14, 2010 | RLD: No | RS: No | Type: RX